FAERS Safety Report 5096627-7 (Version None)
Quarter: 2006Q3

REPORT INFORMATION
  Report Type: 
  Country: None (occurrence: None)
  Receive Date: 20060831
  Receipt Date: 20060817
  Transmission Date: 20061208
  Serious: Yes (Hospitalization)
  Sender: FDA-Public Use
  Company Number: T200600927

PATIENT
  Age: 41 Year
  Sex: Female

DRUGS (1)
  1. LIQUID BAROSPERSE (BARIUM SULFATE) SOLUTION [Suspect]
     Indication: X-RAY GASTROINTESTINAL TRACT

REACTIONS (19)
  - ABDOMINAL TENDERNESS [None]
  - ANAEMIA [None]
  - BLOOD CREATININE INCREASED [None]
  - BLOOD UREA INCREASED [None]
  - CATHETER SEPSIS [None]
  - DEHYDRATION [None]
  - EXTRAVASATION [None]
  - FISTULA [None]
  - GASTROINTESTINAL STOMA COMPLICATION [None]
  - HAEMOGLOBIN DECREASED [None]
  - HEART RATE INCREASED [None]
  - IATROGENIC INFECTION [None]
  - IATROGENIC INJURY [None]
  - LIVER ABSCESS [None]
  - MALNUTRITION [None]
  - PERITONITIS [None]
  - POST PROCEDURAL COMPLICATION [None]
  - SEPSIS [None]
  - STAPHYLOCOCCAL INFECTION [None]
